FAERS Safety Report 9392124 (Version 2)
Quarter: 2013Q3

REPORT INFORMATION
  Report Type: Spontaneous
  Country: US (occurrence: US)
  Receive Date: 20130709
  Receipt Date: 20130828
  Transmission Date: 20140515
  Serious: Yes (Disabling, Other)
  Sender: FDA-Public Use
  Company Number: US-GILEAD-2013-0071247

PATIENT
  Age: 43 Year
  Sex: Male

DRUGS (6)
  1. STRIBILD [Suspect]
     Indication: HIV INFECTION
     Dosage: UNK UNKNOWN, UNK
     Route: 065
     Dates: start: 20130118, end: 201302
  2. LISINOPRIL [Concomitant]
     Dosage: 10 MG, QD
     Route: 048
  3. GLYBURIDE [Concomitant]
     Dosage: 5 MG, QD
     Route: 048
  4. LEVEMIR [Concomitant]
  5. MULTIVITAMIN                       /00097801/ [Concomitant]
  6. ANTIOXIDANT                        /02147801/ [Concomitant]

REACTIONS (3)
  - Erythema nodosum [Recovered/Resolved]
  - Renal failure acute [Recovered/Resolved]
  - Lip swelling [Recovered/Resolved]
